FAERS Safety Report 9754270 (Version 1)
Quarter: 2013Q4

REPORT INFORMATION
  Report Type: Spontaneous
  Country: US (occurrence: US)
  Receive Date: 20131213
  Receipt Date: 20131213
  Transmission Date: 20140711
  Serious: No
  Sender: FDA-Public Use
  Company Number: US-TEVA-408385USA

PATIENT
  Age: 48 Year
  Sex: Female
  Weight: 82.17 kg

DRUGS (3)
  1. PARAGARD 380A [Suspect]
     Indication: CONTRACEPTION
     Route: 015
     Dates: start: 20130320, end: 20130523
  2. PROGESTERONE [Concomitant]
     Indication: HORMONE LEVEL ABNORMAL
     Dosage: 150 MILLIGRAM DAILY;
     Route: 048
  3. TORCINE [Concomitant]
     Dosage: 45 MILLIGRAM DAILY;
     Route: 048

REACTIONS (4)
  - Vaginal infection [Recovered/Resolved]
  - Metrorrhagia [Recovered/Resolved]
  - Fungal infection [Not Recovered/Not Resolved]
  - Device expulsion [Recovered/Resolved]
